FAERS Safety Report 11831177 (Version 1)
Quarter: 2015Q4

REPORT INFORMATION
  Report Type: Spontaneous
  Country: US (occurrence: None)
  Receive Date: 20151211
  Receipt Date: 20151211
  Transmission Date: 20160305
  Serious: Yes (Hospitalization)
  Sender: FDA-Public Use
  Company Number: None

PATIENT
  Age: 67 Year
  Sex: Male
  Weight: 73 kg

DRUGS (1)
  1. ERTAPENEM [Suspect]
     Active Substance: ERTAPENEM
     Indication: URINARY TRACT INFECTION
     Route: 042
     Dates: start: 20151110, end: 20151116

REACTIONS (1)
  - Mental status changes [None]

NARRATIVE: CASE EVENT DATE: 20151116
